FAERS Safety Report 7312061-0 (Version None)
Quarter: 2011Q1

REPORT INFORMATION
  Report Type: 
  Country: None (occurrence: None)
  Receive Date: 20110224
  Receipt Date: 20101004
  Transmission Date: 20110831
  Serious: Yes (Other)
  Sender: FDA-Public Use
  Company Number: US-BRISTOL-MYERS SQUIBB COMPANY-15215080

PATIENT

DRUGS (4)
  1. CARBOPLATIN [Suspect]
     Indication: PROSTATE CANCER
  2. TAXOTERE [Suspect]
     Indication: PROSTATE CANCER
  3. PREDNISONE [Suspect]
     Indication: PROSTATE CANCER
  4. TAXOL [Suspect]
     Indication: PROSTATE CANCER

REACTIONS (1)
  - NEOPLASM MALIGNANT [None]
